FAERS Safety Report 5852281-5 (Version None)
Quarter: 2008Q3

REPORT INFORMATION
  Report Type: 
  Country: None (occurrence: None)
  Receive Date: 20080821
  Receipt Date: 20080813
  Transmission Date: 20090109
  Serious: Yes (Hospitalization, Other)
  Sender: FDA-Public Use
  Company Number: US-AMGEN-QUU296590

PATIENT
  Sex: Female

DRUGS (3)
  1. ENBREL [Suspect]
     Indication: RHEUMATOID ARTHRITIS
     Route: 058
  2. HUMIRA [Concomitant]
  3. PROTONIX [Concomitant]

REACTIONS (6)
  - FALL [None]
  - GASTRIC BYPASS [None]
  - GASTRITIS [None]
  - PAIN [None]
  - RASH [None]
  - RHEUMATOID ARTHRITIS [None]
